FAERS Safety Report 11152951 (Version 1)
Quarter: 2015Q2

REPORT INFORMATION
  Report Type: Spontaneous
  Country: US (occurrence: None)
  Receive Date: 20150522
  Receipt Date: 20150522
  Transmission Date: 20150821
  Serious: Yes (Hospitalization)
  Sender: FDA-Public Use
  Company Number: 12-02-006

PATIENT
  Age: 48 Year
  Sex: Female

DRUGS (2)
  1. HYDROCHLORIZIDE [Concomitant]
  2. HYDROXYZINE HYDROCHLORIDE. [Suspect]
     Active Substance: HYDROXYZINE HYDROCHLORIDE
     Indication: ANTIALLERGIC THERAPY
     Route: 048

REACTIONS (4)
  - Dizziness [None]
  - Asthenia [None]
  - Confusional state [None]
  - Chest discomfort [None]

NARRATIVE: CASE EVENT DATE: 20120219
